FAERS Safety Report 8501125-1 (Version None)
Quarter: 2012Q3

REPORT INFORMATION
  Report Type: 
  Country: None (occurrence: None)
  Receive Date: 20120710
  Receipt Date: 20120704
  Transmission Date: 20120928
  Serious: Yes (Other)
  Sender: FDA-Public Use
  Company Number: PHHY2012BR029890

PATIENT
  Sex: Female
  Weight: 90 kg

DRUGS (3)
  1. AMLODOPINE BESYLATE AND VALSARTAN [Suspect]
     Indication: HYPERTENSION
     Dosage: 1 DF(VALS 160 MG AND 5 MG AMLO), QD
     Route: 048
     Dates: start: 20120101
  2. SIMVASTATIN [Concomitant]
     Indication: BLOOD CHOLESTEROL ABNORMAL
  3. HYDROCHLOROTHIAZIDE [Concomitant]

REACTIONS (3)
  - BLOOD PRESSURE DECREASED [None]
  - DENGUE FEVER [None]
  - OEDEMA PERIPHERAL [None]
